FAERS Safety Report 5083522-2 (Version None)
Quarter: 2006Q3

REPORT INFORMATION
  Report Type: 
  Country: None (occurrence: None)
  Receive Date: 20060818
  Receipt Date: 20060808
  Transmission Date: 20061208
  Serious: Yes (Hospitalization)
  Sender: FDA-Public Use
  Company Number: 2006SE04393

PATIENT
  Age: 19 Year
  Sex: Female

DRUGS (3)
  1. SEROQUEL [Suspect]
     Dosage: 50 X 200 MG TABLETS
     Route: 048
  2. STRATTERA [Suspect]
     Route: 048
  3. IMOVANE [Suspect]
     Route: 048

REACTIONS (3)
  - AGITATION [None]
  - MULTIPLE DRUG OVERDOSE [None]
  - OVERDOSE [None]
